FAERS Safety Report 17041956 (Version 3)
Quarter: 2019Q4

REPORT INFORMATION
  Report Type: Report from Study
  Country: KR (occurrence: KR)
  Receive Date: 20191118
  Receipt Date: 20191208
  Transmission Date: 20200122
  Serious: Yes (Hospitalization, Other)
  Sender: FDA-Public Use
  Company Number: NVSC2019KR035409

PATIENT
  Age: 77 Year
  Sex: Female
  Weight: 73 kg

DRUGS (8)
  1. ELIQUIS [Concomitant]
     Active Substance: APIXABAN
     Indication: ATRIAL FIBRILLATION
     Dosage: 2.5 MG
     Route: 065
     Dates: start: 20170107
  2. DILATREND [Concomitant]
     Active Substance: CARVEDILOL
     Indication: CARDIAC FAILURE CHRONIC
     Dosage: 6.25 MG
     Route: 065
     Dates: start: 20170107
  3. REMINYL [Concomitant]
     Active Substance: GALANTAMINE
     Indication: CEREBRAL INFARCTION
     Dosage: 24 MG
     Route: 065
     Dates: start: 20170720
  4. ENTRESTO [Suspect]
     Active Substance: SACUBITRIL\VALSARTAN
     Indication: CARDIAC FAILURE CHRONIC
     Dosage: 50 MG, BID
     Route: 065
     Dates: start: 20190619, end: 20190702
  5. ENTRESTO [Suspect]
     Active Substance: SACUBITRIL\VALSARTAN
     Dosage: 100 MG, BID
     Route: 065
     Dates: start: 20190703
  6. DIGOSIN [Concomitant]
     Active Substance: DIGOXIN
     Indication: CARDIAC FAILURE CHRONIC
     Dosage: 0.25 MG
     Route: 065
     Dates: start: 20170107
  7. LASIX [Concomitant]
     Active Substance: FUROSEMIDE
     Indication: CARDIAC FAILURE CHRONIC
     Dosage: 40 MG
     Route: 065
     Dates: start: 20170107
  8. ENTRESTO [Suspect]
     Active Substance: SACUBITRIL\VALSARTAN
     Dosage: 200 MG
     Route: 048
     Dates: start: 20190703

REACTIONS (9)
  - Chronic kidney disease [Recovering/Resolving]
  - Liver disorder [Recovering/Resolving]
  - Appendiceal abscess [Recovered/Resolved]
  - Appendicolith [Unknown]
  - White blood cell count decreased [Unknown]
  - Renal atrophy [Unknown]
  - Abdominal pain [Unknown]
  - Hepatic cirrhosis [Recovering/Resolving]
  - Appendicitis [Unknown]

NARRATIVE: CASE EVENT DATE: 20191023
